FAERS Safety Report 9209164 (Version 2)
Quarter: 2013Q3

REPORT INFORMATION
  Report Type: Report from Study
  Country: FR (occurrence: FR)
  Receive Date: 20130404
  Receipt Date: 20130709
  Transmission Date: 20140515
  Serious: Yes (Death)
  Sender: FDA-Public Use
  Company Number: PHHY2013FR032328

PATIENT
  Age: 71 Year
  Sex: Female

DRUGS (7)
  1. RASILEZ [Suspect]
     Indication: HYPERTENSION
     Dosage: 300 MG, UKN
     Dates: start: 20100501
  2. RASILEZ [Suspect]
     Indication: PROTEINURIA
  3. TAHOR [Concomitant]
     Indication: HYPERCHOLESTEROLAEMIA
     Dosage: 80 MG, UNK
     Dates: start: 20101107
  4. LASILIX [Concomitant]
     Indication: HYPERTENSION
     Dosage: 40 MG, UNK
     Dates: start: 20101107
  5. TAREG [Concomitant]
     Indication: HYPERTENSION
     Dosage: 160 MG, UNK
     Dates: start: 20090805
  6. TAREG [Concomitant]
     Indication: PROTEINURIA
  7. IPERTEN [Concomitant]
     Indication: HYPERTENSION
     Dosage: 20 MG, UNK
     Dates: start: 20100406

REACTIONS (1)
  - Death [Fatal]
